FAERS Safety Report 5506632-1 (Version None)
Quarter: 2007Q4

REPORT INFORMATION
  Report Type: 
  Country: None (occurrence: None)
  Receive Date: 20071105
  Receipt Date: 20071101
  Transmission Date: 20080405
  Serious: Yes (Life-Threatening, Hospitalization)
  Sender: FDA-Public Use
  Company Number: GB-ROCHE-524176

PATIENT
  Age: 60 Year
  Sex: Female

DRUGS (12)
  1. BONIVA [Suspect]
     Indication: OSTEOPOROSIS
     Route: 042
     Dates: start: 20070803, end: 20070804
  2. SIMVASTATIN [Concomitant]
  3. METFORMIN [Concomitant]
  4. FORCEVAL [Concomitant]
  5. AMLODIPINE [Concomitant]
  6. CITALOPRAM HYDROBROMIDE [Concomitant]
  7. ASPIRIN [Concomitant]
  8. ESOMEPRAZOLE [Concomitant]
  9. ROSIGLITAZONE [Concomitant]
  10. QUININE [Concomitant]
  11. BISOPROLOL FUMARATE [Concomitant]
  12. VALSARTAN [Concomitant]

REACTIONS (2)
  - ANAPHYLACTIC REACTION [None]
  - ANGIOEDEMA [None]
